FAERS Safety Report 7166844-0 (Version None)
Quarter: 2010Q4

REPORT INFORMATION
  Report Type: 
  Country: None (occurrence: None)
  Receive Date: 20101216
  Receipt Date: 20100706
  Transmission Date: 20110411
  Serious: Yes (Hospitalization)
  Sender: FDA-Public Use
  Company Number: US-MYLANLABS-2010S1011772

PATIENT
  Age: 40 Year
  Sex: Female

DRUGS (1)
  1. THIORIDAZINE HYDROCHLORIDE [Suspect]
     Indication: MANIA
     Route: 048
     Dates: start: 19690101, end: 19690101

REACTIONS (1)
  - CONVULSION [None]
